FAERS Safety Report 6084111-3 (Version None)
Quarter: 2009Q1

REPORT INFORMATION
  Report Type: 
  Country: None (occurrence: None)
  Receive Date: 20090217
  Receipt Date: 20090217
  Transmission Date: 20090719
  Serious: Yes (Other)
  Sender: FDA-Public Use
  Company Number: None

PATIENT
  Age: 27 Year
  Sex: Female
  Weight: 100.2449 kg

DRUGS (1)
  1. CHANTIX [Suspect]
     Indication: SMOKING CESSATION THERAPY
     Dosage: 0.5 MG QD PO
     Route: 048
     Dates: start: 20090127, end: 20090130

REACTIONS (5)
  - AFFECT LABILITY [None]
  - ANXIETY [None]
  - CRYING [None]
  - DISTURBANCE IN ATTENTION [None]
  - FOOD CRAVING [None]
